FAERS Safety Report 16168859 (Version 3)
Quarter: 2019Q4

REPORT INFORMATION
  Report Type: Spontaneous
  Country: JP (occurrence: JP)
  Receive Date: 20190408
  Receipt Date: 20191202
  Transmission Date: 20200122
  Serious: Yes (Hospitalization)
  Sender: FDA-Public Use
  Company Number: JP-BAYER-2019-067344

PATIENT
  Age: 14 Year
  Sex: Male

DRUGS (4)
  1. HIRUDOID [Concomitant]
     Active Substance: GLYCOSAMINOGLYCANS
     Indication: DERMATITIS ATOPIC
     Dosage: DAILY DOSE ABOUT 3G
     Route: 003
     Dates: start: 20090529, end: 20090530
  2. ANTEBATE [Concomitant]
     Active Substance: BETAMETHASONE DIPROPIONATE
     Indication: DERMATITIS ATOPIC
     Dosage: DAILY DOSE ABOUT 3G
     Route: 003
     Dates: start: 20090529, end: 20090530
  3. EURAX [Concomitant]
     Active Substance: CROTAMITON
     Indication: DERMATITIS ATOPIC
     Dosage: DAILY DOSE ABOUT 3G
     Route: 003
     Dates: start: 20090529, end: 20090530
  4. CLARITIN [Suspect]
     Active Substance: LORATADINE
     Indication: DERMATITIS ATOPIC
     Dosage: DAILY DOSE 20MG
     Route: 048
     Dates: start: 20090530, end: 20090530

REACTIONS (3)
  - Loss of consciousness [Recovered/Resolved]
  - Heat illness [None]
  - Dehydration [None]

NARRATIVE: CASE EVENT DATE: 20090530
